FAERS Safety Report 14352502 (Version 1)
Quarter: 2018Q1

REPORT INFORMATION
  Report Type: Report from Study
  Country: US (occurrence: US)
  Receive Date: 20180104
  Receipt Date: 20180104
  Transmission Date: 20180509
  Serious: Yes (Death, Hospitalization)
  Sender: FDA-Public Use
  Company Number: US-ACTELION-A-US2017-155411

PATIENT
  Age: 55 Year
  Sex: Female
  Weight: 81.63 kg

DRUGS (3)
  1. OPSUMIT [Suspect]
     Active Substance: MACITENTAN
     Indication: PULMONARY HYPERTENSION
     Dosage: 10 MG, QD
     Route: 048
  2. REMODULIN [Concomitant]
     Active Substance: TREPROSTINIL
  3. ADCIRCA [Concomitant]
     Active Substance: TADALAFIL

REACTIONS (9)
  - Rhinorrhoea [Unknown]
  - Oropharyngeal pain [Unknown]
  - Headache [Unknown]
  - Impaired gastric emptying [Unknown]
  - Sinusitis [Unknown]
  - Vomiting [Unknown]
  - Death [Fatal]
  - Paranasal sinus hypersecretion [Unknown]
  - Cardiac failure congestive [Unknown]

NARRATIVE: CASE EVENT DATE: 20171005
